FAERS Safety Report 25473912 (Version 3)
Quarter: 2025Q3

REPORT INFORMATION
  Report Type: Report from Study
  Country: US (occurrence: US)
  Receive Date: 20250624
  Receipt Date: 20250814
  Transmission Date: 20251020
  Serious: Yes (Other)
  Sender: ALEXION PHARMACEUTICALS
  Company Number: US-AstraZeneca-CH-00896304A

PATIENT
  Sex: Male

DRUGS (1)
  1. ULTOMIRIS [Suspect]
     Active Substance: RAVULIZUMAB-CWVZ
     Indication: Myasthenia gravis
     Route: 065

REACTIONS (10)
  - Parkinson^s disease [Unknown]
  - Dysphagia [Unknown]
  - Mastication disorder [Unknown]
  - Limb discomfort [Unknown]
  - Eye discharge [Unknown]
  - Visual impairment [Unknown]
  - Diplopia [Unknown]
  - Reflux gastritis [Unknown]
  - Diarrhoea [Unknown]
  - Dysphonia [Unknown]
